FAERS Safety Report 8247936-1 (Version None)
Quarter: 2012Q1

REPORT INFORMATION
  Report Type: 
  Country: None (occurrence: None)
  Receive Date: 20120330
  Receipt Date: 20120319
  Transmission Date: 20120608
  Serious: Yes (Death, Hospitalization)
  Sender: FDA-Public Use
  Company Number: JP-ACTELION-A-CH2011-54635

PATIENT
  Age: 58 Year
  Sex: Male

DRUGS (7)
  1. TRACLEER [Suspect]
     Dosage: 93.75 MG, BID
     Route: 048
     Dates: start: 20110519, end: 20110831
  2. CILOSTAZOL [Concomitant]
  3. TRACLEER [Suspect]
     Dosage: 62.5 MG, BID
     Route: 048
     Dates: start: 20110901, end: 20110915
  4. TRACLEER [Suspect]
     Indication: PULMONARY ARTERIAL HYPERTENSION
     Dosage: 62.5 MG, BID
     Route: 048
     Dates: start: 20110120, end: 20110202
  5. AMLODIPINE BESYLATE [Concomitant]
  6. BERAPROST SODIUM [Concomitant]
  7. TRACLEER [Suspect]
     Dosage: 125 MG, BID
     Route: 048
     Dates: start: 20110203, end: 20110518

REACTIONS (11)
  - BLOOD ALKALINE PHOSPHATASE INCREASED [None]
  - CHEMOTHERAPY [None]
  - TRANSITIONAL CELL CARCINOMA [None]
  - BIOPSY LIVER [None]
  - PYREXIA [None]
  - METASTASIS [None]
  - MALIGNANT NEOPLASM OF RENAL PELVIS [None]
  - HEPATIC FUNCTION ABNORMAL [None]
  - COMPUTERISED TOMOGRAM ABNORMAL [None]
  - HEPATIC CANCER METASTATIC [None]
  - BLOOD PRESSURE DECREASED [None]
